FAERS Safety Report 4769074-2 (Version None)
Quarter: 2005Q3

REPORT INFORMATION
  Report Type: 
  Country: None (occurrence: None)
  Receive Date: 20050906
  Receipt Date: 20050502
  Transmission Date: 20060218
  Serious: No
  Sender: FDA-Public Use
  Company Number: 2005-BP-06070BP

PATIENT
  Age: 64 Year
  Sex: Female

DRUGS (4)
  1. SPIRIVA [Suspect]
     Indication: CHRONIC OBSTRUCTIVE PULMONARY DISEASE
     Dosage: 18 MCG (18 MCG,QD), IH
     Route: 055
     Dates: start: 20050411, end: 20050413
  2. SPIRIVA [Suspect]
  3. ALBUTEROL [Concomitant]
  4. LISINOPRIL [Concomitant]

REACTIONS (3)
  - COUGH [None]
  - DYSPNOEA [None]
  - VOMITING [None]
